FAERS Safety Report 8314033-6 (Version None)
Quarter: 2012Q2

REPORT INFORMATION
  Report Type: 
  Country: None (occurrence: None)
  Receive Date: 20120426
  Receipt Date: 20120423
  Transmission Date: 20120825
  Serious: No
  Sender: FDA-Public Use
  Company Number: US-PFIZER INC-2012100481

PATIENT

DRUGS (2)
  1. GABAPENTIN [Suspect]
     Indication: RADICULOPATHY
     Dosage: 600 MG, 3X/DAY
  2. AMITRIPTYLINE HCL [Suspect]
     Dosage: UNK

REACTIONS (1)
  - DRUG INEFFECTIVE [None]
